FAERS Safety Report 8414922-8 (Version None)
Quarter: 2012Q2

REPORT INFORMATION
  Report Type: 
  Country: None (occurrence: None)
  Receive Date: 20120601
  Receipt Date: 20120601
  Transmission Date: 20120825
  Serious: Yes (Death)
  Sender: FDA-Public Use
  Company Number: None

PATIENT
  Age: 75 Year
  Sex: Female
  Weight: 110 kg

DRUGS (1)
  1. LOVENOX [Suspect]
     Indication: ATRIAL FIBRILLATION
     Dosage: 100MG Q12H SQ
     Route: 058
     Dates: start: 20120522, end: 20120525

REACTIONS (2)
  - RETROPERITONEAL HAEMORRHAGE [None]
  - CARDIO-RESPIRATORY ARREST [None]
